FAERS Safety Report 25979217 (Version 1)
Quarter: 2025Q4

REPORT INFORMATION
  Report Type: Spontaneous
  Country: UA (occurrence: UA)
  Receive Date: 20251030
  Receipt Date: 20251030
  Transmission Date: 20260118
  Serious: Yes (Other)
  Sender: ROCHE
  Company Number: UA-ROCHE-10000419489

PATIENT
  Age: 63 Year
  Sex: Female

DRUGS (1)
  1. FARICIMAB [Suspect]
     Active Substance: FARICIMAB
     Indication: Retinal vein occlusion
     Route: 065

REACTIONS (2)
  - Endophthalmitis [Unknown]
  - Off label use [Unknown]
